FAERS Safety Report 10197712 (Version 2)
Quarter: 2014Q2

REPORT INFORMATION
  Report Type: Spontaneous
  Country: US (occurrence: US)
  Receive Date: 20140527
  Receipt Date: 20140527
  Transmission Date: 20141212
  Serious: No
  Sender: FDA-Public Use
  Company Number: US-BRISTOL-MYERS SQUIBB COMPANY-19593466

PATIENT
  Age: 64 Year
  Sex: Female

DRUGS (5)
  1. PRAVACHOL [Suspect]
  2. LOTENSIN HCT [Concomitant]
  3. LOVASTATIN [Concomitant]
  4. ATIVAN [Concomitant]
  5. AMBIEN [Concomitant]

REACTIONS (1)
  - Hypersensitivity [Unknown]
